FAERS Safety Report 4877424-1 (Version None)
Quarter: 2006Q1

REPORT INFORMATION
  Report Type: 
  Country: None (occurrence: None)
  Receive Date: 20060109
  Receipt Date: 20051228
  Transmission Date: 20060701
  Serious: Yes (Other)
  Sender: FDA-Public Use
  Company Number: 2005173487

PATIENT
  Sex: Male
  Weight: 107.5025 kg

DRUGS (8)
  1. LIPITOR [Suspect]
     Indication: BLOOD CHOLESTEROL
     Dosage: 20 MG (20 MG, 1 IN 1 D), ORAL
     Route: 048
     Dates: start: 20030101
  2. PREDNISONE [Suspect]
     Indication: PULMONARY FIBROSIS
     Dosage: (20 MG)
     Dates: start: 20041201
  3. SALBUTAMOL SULFATE (SALBUTAMOL SULFATE) [Concomitant]
  4. LISINOPRIL [Concomitant]
  5. INSULIN [Concomitant]
  6. FOLIC ACID [Concomitant]
  7. FERROUS SULFATE TAB [Concomitant]
  8. PROTONIX [Concomitant]

REACTIONS (7)
  - ARTHRALGIA [None]
  - BLOOD GLUCOSE DECREASED [None]
  - MENISCUS LESION [None]
  - MYALGIA [None]
  - OCCUPATIONAL EXPOSURE TO DUST [None]
  - OCCUPATIONAL EXPOSURE TO TOXIC AGENT [None]
  - PULMONARY FIBROSIS [None]
